FAERS Safety Report 23509562 (Version 1)
Quarter: 2024Q1

REPORT INFORMATION
  Report Type: Spontaneous
  Country: US (occurrence: US)
  Receive Date: 20240210
  Receipt Date: 20240210
  Transmission Date: 20240410
  Serious: No
  Sender: FDA-Public Use
  Company Number: US-ABBVIE-5626099

PATIENT

DRUGS (1)
  1. LINZESS [Suspect]
     Active Substance: LINACLOTIDE
     Indication: Constipation
     Dosage: FORM STRENGTH: 72 GRAM
     Route: 048
     Dates: start: 202401

REACTIONS (6)
  - Drug ineffective [Unknown]
  - Unevaluable event [Unknown]
  - Impaired work ability [Unknown]
  - Diarrhoea [Unknown]
  - Back disorder [Unknown]
  - Musculoskeletal disorder [Unknown]
